FAERS Safety Report 16122099 (Version 2)
Quarter: 2019Q2

REPORT INFORMATION
  Report Type: Spontaneous
  Country: US (occurrence: US)
  Receive Date: 20190327
  Receipt Date: 20190531
  Transmission Date: 20190711
  Serious: No
  Sender: FDA-Public Use
  Company Number: US-PFIZER INC-2018202880

PATIENT
  Age: 54 Year
  Sex: Female

DRUGS (3)
  1. LYRICA [Suspect]
     Active Substance: PREGABALIN
     Indication: NEURALGIA
     Dosage: UNK
  2. LYRICA [Suspect]
     Active Substance: PREGABALIN
     Indication: NEPHROPATHY
  3. LYRICA [Suspect]
     Active Substance: PREGABALIN
     Indication: CHEMOTHERAPY

REACTIONS (2)
  - Dyspnoea [Unknown]
  - Malaise [Unknown]
